FAERS Safety Report 5199044-4 (Version None)
Quarter: 2006Q4

REPORT INFORMATION
  Report Type: 
  Country: None (occurrence: None)
  Receive Date: 20060919
  Receipt Date: 20060705
  Transmission Date: 20070319
  Serious: Yes (Other)
  Sender: FDA-Public Use
  Company Number: HQWYE662807JUL06

PATIENT
  Sex: Female

DRUGS (1)
  1. ADVIL [Suspect]
     Indication: RHINITIS
     Dosage: 1  TO 2  LIQUI-GELS DAILY, ORAL
     Route: 048
     Dates: start: 20060601

REACTIONS (1)
  - DYSPHAGIA [None]
